FAERS Safety Report 20518676 (Version 1)
Quarter: 2022Q1

REPORT INFORMATION
  Report Type: Spontaneous
  Country: FR (occurrence: FR)
  Receive Date: 20220225
  Receipt Date: 20220225
  Transmission Date: 20220423
  Serious: Yes (Hospitalization)
  Sender: FDA-Public Use
  Company Number: FR-ABBVIE-22K-056-4288975-00

PATIENT
  Age: 85 Year
  Sex: Male

DRUGS (13)
  1. VALPROATE SODIUM [Suspect]
     Active Substance: VALPROATE SODIUM
     Indication: Prescription drug used without a prescription
     Dosage: SINGLE DOSE
     Route: 048
     Dates: start: 20190620, end: 20190620
  2. OLANZAPINE [Suspect]
     Active Substance: OLANZAPINE
     Indication: Prescription drug used without a prescription
     Dosage: SINGLE DOSE
     Route: 048
     Dates: start: 20190620, end: 20190620
  3. SIMVASTATIN [Suspect]
     Active Substance: SIMVASTATIN
     Indication: Prescription drug used without a prescription
     Dosage: SINGLE DOSE
     Route: 048
     Dates: start: 20190620, end: 20190620
  4. OXAZEPAM [Suspect]
     Active Substance: OXAZEPAM
     Indication: Prescription drug used without a prescription
     Dosage: SINGLE DOSE
     Route: 048
     Dates: start: 20190620, end: 20190620
  5. LOXAPINE [Suspect]
     Active Substance: LOXAPINE
     Indication: Prescription drug used without a prescription
     Dosage: SINGLE DOSE
     Route: 048
     Dates: start: 20190620, end: 20190620
  6. LANSOPRAZOLE [Concomitant]
     Active Substance: LANSOPRAZOLE
     Indication: Product used for unknown indication
  7. ACETAMINOPHEN [Concomitant]
     Active Substance: ACETAMINOPHEN
     Indication: Product used for unknown indication
  8. KARDEGIC [Concomitant]
     Active Substance: ASPIRIN DL-LYSINE
     Indication: Product used for unknown indication
  9. MIANSERIN HYDROCHLORIDE [Concomitant]
     Active Substance: MIANSERIN HYDROCHLORIDE
     Indication: Product used for unknown indication
  10. TRAMADOL HYDROCHLORIDE [Concomitant]
     Active Substance: TRAMADOL HYDROCHLORIDE
     Indication: Product used for unknown indication
  11. AMIODARONE HYDROCHLORIDE [Concomitant]
     Active Substance: AMIODARONE HYDROCHLORIDE
     Indication: Product used for unknown indication
  12. TAMSULOSIN HYDROCHLORIDE [Concomitant]
     Active Substance: TAMSULOSIN HYDROCHLORIDE
     Indication: Product used for unknown indication
  13. RISPERIDONE [Concomitant]
     Active Substance: RISPERIDONE
     Indication: Product used for unknown indication

REACTIONS (2)
  - Somnolence [Recovered/Resolved]
  - Wrong patient received product [Recovered/Resolved]

NARRATIVE: CASE EVENT DATE: 20190620
